FAERS Safety Report 19244259 (Version 2)
Quarter: 2021Q2

REPORT INFORMATION
  Report Type: Spontaneous
  Country: CH (occurrence: CH)
  Receive Date: 20210512
  Receipt Date: 20210610
  Transmission Date: 20210717
  Serious: Yes (Other)
  Sender: FDA-Public Use
  Company Number: CH-BEH-2021131633

PATIENT
  Sex: Female

DRUGS (3)
  1. HIZENTRA [Suspect]
     Active Substance: HUMAN IMMUNOGLOBULIN G
     Dosage: UNK
     Route: 065
     Dates: start: 20210429
  2. CORTISONE [Concomitant]
     Active Substance: CORTISONE
     Dosage: 8 MILLIGRAM
     Dates: start: 20210429
  3. DAFALGAN [Concomitant]
     Active Substance: ACETAMINOPHEN
     Dosage: 1 GRAM
     Dates: start: 20210429

REACTIONS (9)
  - Cardiac arrest [Unknown]
  - Extrasystoles [Unknown]
  - Arrhythmia [Unknown]
  - Headache [Unknown]
  - Infusion site erythema [Recovered/Resolved]
  - Hyperaesthesia [Not Recovered/Not Resolved]
  - Pain [Unknown]
  - Dizziness [Unknown]
  - Abdominal distension [Not Recovered/Not Resolved]

NARRATIVE: CASE EVENT DATE: 20210429
